FAERS Safety Report 7890419 (Version 2)
Quarter: 2014Q3

REPORT INFORMATION
  Report Type: Spontaneous
  Country: GB (occurrence: GB)
  Receive Date: 20110408
  Receipt Date: 20140728
  Transmission Date: 20150326
  Serious: Yes (Other)
  Sender: FDA-Public Use
  Company Number: GB-RANBAXY-2011R1-43341

PATIENT
  Age: 95 Year
  Sex: Male

DRUGS (8)
  1. AMITRIPTYLINE HYDROCHLORIDE. [Concomitant]
     Active Substance: AMITRIPTYLINE HYDROCHLORIDE
     Indication: DEPRESSION
     Dosage: 10 MG, QD
     Route: 065
     Dates: start: 20110214, end: 20110215
  2. OMEPRAZOLE. [Concomitant]
     Active Substance: OMEPRAZOLE
     Indication: GASTROOESOPHAGEAL REFLUX DISEASE
     Dosage: 20 MG, QD
     Route: 065
     Dates: start: 20100308
  3. ACETAMINOPHEN. [Concomitant]
     Active Substance: ACETAMINOPHEN
     Indication: PAIN
     Dosage: 4 G, QD
     Route: 065
     Dates: start: 20070116
  4. FENTANYL. [Concomitant]
     Active Substance: FENTANYL
     Indication: PAIN
     Dosage: UNK,UNK
     Route: 061
     Dates: start: 20110308
  5. LYRICA [Suspect]
     Active Substance: PREGABALIN
     Dosage: 25 MG, QD
     Route: 065
     Dates: start: 20110219
  6. LISINOPRIL. [Suspect]
     Active Substance: LISINOPRIL
     Indication: HYPERTENSION
     Dosage: 2.5 MG, QD
     Route: 048
     Dates: start: 20060522, end: 20060618
  7. LISINOPRIL. [Suspect]
     Active Substance: LISINOPRIL
     Dosage: 5 MG, QD
     Route: 048
     Dates: start: 20060619
  8. LYRICA [Suspect]
     Active Substance: PREGABALIN
     Indication: PRODUCT USED FOR UNKNOWN INDICATION
     Dosage: 25 MG, QD
     Route: 065
     Dates: start: 201102

REACTIONS (4)
  - Depression [Unknown]
  - Syncope [Unknown]
  - Fall [Unknown]
  - Hallucination [Unknown]

NARRATIVE: CASE EVENT DATE: 2010
